FAERS Safety Report 5632634-0 (Version None)
Quarter: 2008Q1

REPORT INFORMATION
  Report Type: 
  Country: None (occurrence: None)
  Receive Date: 20080219
  Receipt Date: 20080212
  Transmission Date: 20080703
  Serious: Yes (Death, Hospitalization, Other)
  Sender: FDA-Public Use
  Company Number: CLOF-10795

PATIENT
  Age: 67 Year
  Sex: Male
  Weight: 78.2 kg

DRUGS (4)
  1. CLOFARABINE (CLOFARABINE) SOLUTION FOR INFUSION [Suspect]
     Indication: BONE MARROW CONDITIONING REGIMEN
     Dosage: 54 MG, QX5, INTRAVENOUS
     Route: 042
     Dates: start: 20071113, end: 20071117
  2. CYCLOPHOSPHAMIDE [Suspect]
     Indication: BONE MARROW CONDITIONING REGIMEN
     Dosage: 900 MG, QD, INTRAVENOUS
     Route: 042
     Dates: start: 20071114, end: 20071115
  3. METHOTREXATE [Suspect]
     Indication: BONE MARROW CONDITIONING REGIMEN
     Dosage: 9 MG, ONCE, INTRAVENOUS; 9 MG, ONCE, INTRAVENOUS
     Route: 042
     Dates: start: 20071122, end: 20071122
  4. METHOTREXATE [Suspect]
     Indication: BONE MARROW CONDITIONING REGIMEN
     Dosage: 9 MG, ONCE, INTRAVENOUS; 9 MG, ONCE, INTRAVENOUS
     Route: 042
     Dates: start: 20071127, end: 20071127

REACTIONS (12)
  - ASPARTATE AMINOTRANSFERASE INCREASED [None]
  - BLOOD BILIRUBIN INCREASED [None]
  - BLOOD STEM CELL TRANSPLANT FAILURE [None]
  - DEPRESSED LEVEL OF CONSCIOUSNESS [None]
  - DIALYSIS [None]
  - ENCEPHALOPATHY [None]
  - LIVER FUNCTION TEST ABNORMAL [None]
  - MUCOSAL INFLAMMATION [None]
  - NEUTROPENIC INFECTION [None]
  - PYREXIA [None]
  - RENAL FAILURE ACUTE [None]
  - TRANSPLANT REJECTION [None]
